FAERS Safety Report 8288097-2 (Version None)
Quarter: 2012Q2

REPORT INFORMATION
  Report Type: 
  Country: None (occurrence: None)
  Receive Date: 20120416
  Receipt Date: 20120410
  Transmission Date: 20120825
  Serious: Yes (Life-Threatening, Hospitalization)
  Sender: FDA-Public Use
  Company Number: DE-ASTRAZENECA-2012SE23239

PATIENT
  Sex: Male
  Weight: 66 kg

DRUGS (4)
  1. NAROPIN [Suspect]
     Indication: ANALGESIC THERAPY
  2. NIMBEX [Concomitant]
     Indication: STUPOR
     Route: 042
  3. PROPOFOL [Suspect]
     Indication: STUPOR
     Route: 042
  4. REMIFENTANIL [Concomitant]
     Indication: STUPOR
     Route: 042

REACTIONS (2)
  - ANAPHYLACTIC SHOCK [None]
  - URTICARIA [None]
